FAERS Safety Report 25251156 (Version 1)
Quarter: 2025Q2

REPORT INFORMATION
  Report Type: Spontaneous
  Country: US (occurrence: US)
  Receive Date: 20250429
  Receipt Date: 20250429
  Transmission Date: 20250716
  Serious: Yes (Other)
  Sender: BAYER HEALTHCARE LLC
  Company Number: US-BAYER-2025A056406

PATIENT
  Age: 71 Year
  Sex: Female

DRUGS (2)
  1. GENUINE BAYER ASPIRIN [Suspect]
     Active Substance: ASPIRIN
     Dosage: 325 MG DAILY
  2. PREDNISONE [Suspect]
     Active Substance: PREDNISONE
     Dosage: 10 MG QD

REACTIONS (4)
  - Melaena [None]
  - Haemoglobin decreased [None]
  - Gastric ulcer [None]
  - Peptic ulcer [None]
